FAERS Safety Report 20678445 (Version 1)
Quarter: 2022Q2

REPORT INFORMATION
  Report Type: Spontaneous
  Country: IN (occurrence: IN)
  Receive Date: 20220406
  Receipt Date: 20220406
  Transmission Date: 20220721
  Serious: Yes (Hospitalization)
  Sender: FDA-Public Use
  Company Number: IN-Indoco-000289

PATIENT
  Age: 22 Year
  Sex: Male

DRUGS (1)
  1. SUCCINYLCHOLINE CHLORIDE [Suspect]
     Active Substance: SUCCINYLCHOLINE CHLORIDE
     Dosage: SUX (50 MG/ML) MEANT FOR INTRAVENOUS INJECTION WAS CONSUMED BY PATIENT ORALLY
     Route: 048

REACTIONS (3)
  - Accidental exposure to product [Unknown]
  - Muscle contractions involuntary [Unknown]
  - Incorrect route of product administration [Unknown]
